FAERS Safety Report 10074248 (Version 1)
Quarter: 2014Q2

REPORT INFORMATION
  Report Type: Spontaneous
  Country: US (occurrence: US)
  Receive Date: 20140411
  Receipt Date: 20140411
  Transmission Date: 20141212
  Serious: No
  Sender: FDA-Public Use
  Company Number: US-SANOFI-AVENTIS-2013SA038874

PATIENT
  Age: 63 Year
  Sex: Male

DRUGS (3)
  1. ALLEGRA-D, 24 HR [Suspect]
     Route: 048
     Dates: start: 20130410, end: 20130410
  2. ZYRTEC [Concomitant]
  3. CLARITIN [Concomitant]

REACTIONS (2)
  - Insomnia [Unknown]
  - Dry mouth [Unknown]
